FAERS Safety Report 7541045-2 (Version None)
Quarter: 2011Q2

REPORT INFORMATION
  Report Type: 
  Country: None (occurrence: None)
  Receive Date: 20110610
  Receipt Date: 20101209
  Transmission Date: 20111010
  Serious: No
  Sender: FDA-Public Use
  Company Number: A0899971A

PATIENT
  Age: 30 Month
  Sex: Female
  Weight: 10.5 kg

DRUGS (1)
  1. ALTABAX [Suspect]
     Indication: IMPETIGO
     Route: 061
     Dates: start: 20101123, end: 20101125

REACTIONS (1)
  - BURNING SENSATION [None]
